FAERS Safety Report 9242375 (Version 1)
Quarter: 2013Q2

REPORT INFORMATION
  Report Type: Spontaneous
  Country: AU (occurrence: AU)
  Receive Date: 20130419
  Receipt Date: 20130419
  Transmission Date: 20140414
  Serious: Yes (Other)
  Sender: FDA-Public Use
  Company Number: PHHY2013AU015489

PATIENT
  Age: 60 Year
  Sex: Male

DRUGS (5)
  1. STALEVO [Suspect]
     Indication: PARKINSON^S DISEASE
     Dosage: 1 DF, TID
     Route: 048
     Dates: start: 20120620, end: 201303
  2. ALLOPURINOL [Concomitant]
     Indication: GOUT
     Dosage: 100 MG, DAILY
     Route: 048
  3. PARACETAMOL [Concomitant]
     Indication: PAIN
     Dosage: 1 G, QID
  4. MAGNESIUM [Concomitant]
     Dosage: 1 DF, DAILY
     Route: 048
  5. QUETIAPINE [Concomitant]
     Indication: RESTLESSNESS
     Dosage: 12.5 MG, PRN
     Route: 048

REACTIONS (2)
  - General physical condition abnormal [Not Recovered/Not Resolved]
  - Dysphagia [Not Recovered/Not Resolved]
